FAERS Safety Report 16809056 (Version 1)
Quarter: 2019Q3

REPORT INFORMATION
  Report Type: Spontaneous
  Country: US (occurrence: US)
  Receive Date: 20190724
  Receipt Date: 20190724
  Transmission Date: 20191005
  Serious: Yes (Other)
  Sender: FDA-Public Use
  Company Number: None

PATIENT
  Age: 58 Year
  Sex: Male
  Weight: 69.85 kg

DRUGS (1)
  1. DIAMOND CBD FULL SPECTRUM CBD OIL (TICLLOSENAC) [Suspect]
     Active Substance: CANNABIDIOL\HERBALS

REACTIONS (6)
  - Dry mouth [None]
  - Micturition disorder [None]
  - Hallucination, auditory [None]
  - Hallucination, visual [None]
  - Dysphagia [None]
  - Thirst [None]

NARRATIVE: CASE EVENT DATE: 20190721
